FAERS Safety Report 5577893-8 (Version None)
Quarter: 2007Q4

REPORT INFORMATION
  Report Type: 
  Country: None (occurrence: None)
  Receive Date: 20071227
  Receipt Date: 20071214
  Transmission Date: 20080405
  Serious: Yes (Hospitalization)
  Sender: FDA-Public Use
  Company Number: 2007BI021766

PATIENT
  Age: 30 Year
  Sex: Female

DRUGS (1)
  1. NATALIZUMAB [Suspect]
     Indication: MULTIPLE SCLEROSIS
     Dosage: 300 MG; QM; IV
     Route: 042
     Dates: start: 20070604

REACTIONS (14)
  - ANGER [None]
  - ANXIETY [None]
  - CRYING [None]
  - DEPRESSION [None]
  - DIZZINESS [None]
  - EATING DISORDER [None]
  - EOSINOPHIL COUNT INCREASED [None]
  - HYPOAESTHESIA [None]
  - INSOMNIA [None]
  - PARAESTHESIA [None]
  - SINUS DISORDER [None]
  - TREMOR [None]
  - VISUAL ACUITY REDUCED [None]
  - WHITE BLOOD CELL COUNT INCREASED [None]
